FAERS Safety Report 6425352-2 (Version None)
Quarter: 2009Q4

REPORT INFORMATION
  Report Type: 
  Country: None (occurrence: None)
  Receive Date: 20091103
  Receipt Date: 20091029
  Transmission Date: 20100525
  Serious: Yes (Other)
  Sender: FDA-Public Use
  Company Number: A0814024A

PATIENT
  Sex: Female

DRUGS (8)
  1. ADVAIR DISKUS 100/50 [Suspect]
     Indication: CHRONIC OBSTRUCTIVE PULMONARY DISEASE
     Dosage: 1PUFF TWICE PER DAY
     Route: 055
  2. SPIRIVA [Concomitant]
  3. VENTOLIN [Concomitant]
  4. CARVEDILOL [Concomitant]
  5. LISINOPRIL [Concomitant]
  6. CLONIDINE [Concomitant]
  7. AMLODIPINE [Concomitant]
  8. GEMFIBROZIL [Concomitant]

REACTIONS (6)
  - BRONCHITIS [None]
  - CONTUSION [None]
  - DYSPNOEA [None]
  - EXPIRED DRUG ADMINISTERED [None]
  - PNEUMONIA [None]
  - PRODUCTIVE COUGH [None]
